FAERS Safety Report 14519950 (Version 1)
Quarter: 2018Q1

REPORT INFORMATION
  Report Type: Spontaneous
  Country: US (occurrence: US)
  Receive Date: 20180212
  Receipt Date: 20180212
  Transmission Date: 20180509
  Serious: No
  Sender: FDA-Public Use
  Company Number: None

PATIENT
  Age: 76 Year
  Sex: Female

DRUGS (10)
  1. FISH OIL [Concomitant]
     Active Substance: FISH OIL
  2. PROLIA [Suspect]
     Active Substance: DENOSUMAB
  3. LISINAPROL [Concomitant]
  4. GLUSOMINE [Concomitant]
  5. PROBIOTIC [Concomitant]
     Active Substance: PROBIOTICS NOS
  6. MAG [Concomitant]
  7. CALCIUM [Concomitant]
     Active Substance: CALCIUM
  8. ZINC. [Concomitant]
     Active Substance: ZINC
  9. MULTIVITAMIN - CENTRUM [Concomitant]
  10. COQ10 [Concomitant]
     Active Substance: UBIDECARENONE

REACTIONS (1)
  - Herpes zoster [None]

NARRATIVE: CASE EVENT DATE: 20171117
